FAERS Safety Report 7989962-3 (Version None)
Quarter: 2011Q4

REPORT INFORMATION
  Report Type: 
  Country: None (occurrence: None)
  Receive Date: 20111215
  Receipt Date: 20111212
  Transmission Date: 20120403
  Serious: Yes (Death)
  Sender: FDA-Public Use
  Company Number: USA/USA/11/0022301

PATIENT
  Sex: Female

DRUGS (1)
  1. FONDAPARINUX SODIUM [Suspect]
     Indication: THROMBOSIS
     Dosage: SUBCUTANEOUS
     Route: 058

REACTIONS (5)
  - LIVER DISORDER [None]
  - HEPATIC NEOPLASM MALIGNANT [None]
  - PRODUCT QUALITY ISSUE [None]
  - DISEASE COMPLICATION [None]
  - SYRINGE ISSUE [None]
